FAERS Safety Report 11599237 (Version 2)
Quarter: 2015Q4

REPORT INFORMATION
  Report Type: Spontaneous
  Country: US (occurrence: US)
  Receive Date: 20151006
  Receipt Date: 20151028
  Transmission Date: 20160304
  Serious: Yes (Hospitalization, Other)
  Sender: FDA-Public Use
  Company Number: US-SUNOVION-2015SUN000427

PATIENT
  Sex: Male
  Weight: 117.1 kg

DRUGS (5)
  1. LATUDA [Suspect]
     Active Substance: LURASIDONE HYDROCHLORIDE
     Indication: SCHIZOAFFECTIVE DISORDER
     Dosage: 80 MG, BID
     Route: 048
     Dates: start: 20150826, end: 20151021
  2. INSULIN [Concomitant]
     Active Substance: INSULIN NOS
  3. KEPPRA [Concomitant]
     Active Substance: LEVETIRACETAM
     Indication: GENERALISED TONIC-CLONIC SEIZURE
  4. DEPAKOTE [Concomitant]
     Active Substance: DIVALPROEX SODIUM
     Indication: GENERALISED TONIC-CLONIC SEIZURE
  5. LATUDA [Suspect]
     Active Substance: LURASIDONE HYDROCHLORIDE
     Indication: PSYCHOTIC DISORDER
     Dosage: 80 MG, BID
     Route: 048
     Dates: start: 20150121, end: 20150811

REACTIONS (8)
  - Seizure [Recovered/Resolved]
  - Tracheobronchitis [Unknown]
  - Postictal state [Recovered/Resolved]
  - Hyponatraemia [Unknown]
  - Psychotic disorder [Recovered/Resolved]
  - Leukocytosis [Unknown]
  - Ketoacidosis [Recovered/Resolved]
  - Blood glucose increased [Recovered/Resolved]
